FAERS Safety Report 16473573 (Version 2)
Quarter: 2019Q3

REPORT INFORMATION
  Report Type: Spontaneous
  Country: NL (occurrence: NL)
  Receive Date: 20190625
  Receipt Date: 20190704
  Transmission Date: 20191004
  Serious: Yes (Life-Threatening, Other)
  Sender: FDA-Public Use
  Company Number: NL-LUPIN PHARMACEUTICALS INC.-2019-03863

PATIENT
  Age: 4 Decade
  Sex: Male

DRUGS (3)
  1. TRAMADOL. [Suspect]
     Active Substance: TRAMADOL
     Dosage: UNK (INJECTION FEW WEEKS LATER)
     Route: 030
     Dates: start: 2018
  2. TRAMADOL. [Suspect]
     Active Substance: TRAMADOL
     Indication: MIGRAINE
     Dosage: 100 MILLIGRAM (INJECTION)
     Route: 030
     Dates: start: 2018
  3. TRAMADOL. [Suspect]
     Active Substance: TRAMADOL
     Dosage: 800 MILLIGRAM, QD (EIGHT INTRAVENOUS INJECTIONS OF 100 MG TRAMADOL PER DAY)
     Route: 042
     Dates: start: 2018

REACTIONS (9)
  - Suicidal ideation [Unknown]
  - Anxiety [Unknown]
  - Wound [Unknown]
  - Intentional product misuse [Unknown]
  - Product administration error [Unknown]
  - Drug abuse [Unknown]
  - Feeling abnormal [Unknown]
  - Drug dependence [Unknown]
  - Epilepsy [Unknown]

NARRATIVE: CASE EVENT DATE: 2018
